FAERS Safety Report 24957815 (Version 1)
Quarter: 2025Q1

REPORT INFORMATION
  Report Type: Spontaneous
  Country: NL (occurrence: NL)
  Receive Date: 20250212
  Receipt Date: 20250212
  Transmission Date: 20250409
  Serious: Yes (Life-Threatening)
  Sender: TEVA
  Company Number: None

PATIENT
  Age: 65 Year
  Sex: Male
  Weight: 89 kg

DRUGS (1)
  1. ENALAPRIL [Suspect]
     Active Substance: ENALAPRIL
     Indication: Hypertension
     Dosage: 1 PIECE ONCE A DAY; BRAND NAME NOT SPECIFIED
     Route: 048
     Dates: start: 20200101, end: 20250115

REACTIONS (1)
  - Angioedema [Recovering/Resolving]
